FAERS Safety Report 7046867-2 (Version None)
Quarter: 2010Q3

REPORT INFORMATION
  Report Type: 
  Country: None (occurrence: None)
  Receive Date: 20100818
  Receipt Date: 20100423
  Transmission Date: 20110219
  Serious: Yes (Death)
  Sender: FDA-Public Use
  Company Number: A10-032

PATIENT
  Age: 37 Year
  Sex: Male

DRUGS (5)
  1. NI ALLERGENIC EXTRACTS [Suspect]
     Indication: ASTHMA
     Dosage: SUBCUTANEOUS EVERY 2 WEEKS
     Route: 058
  2. NI ALLERGENIC EXTRACTS [Suspect]
     Indication: RHINITIS ALLERGIC
     Dosage: SUBCUTANEOUS EVERY 2 WEEKS
     Route: 058
  3. SYMBICORT [Concomitant]
  4. NASAL STEROIDS [Concomitant]
  5. ANTIHISTAMINES [Concomitant]

REACTIONS (1)
  - DEATH [None]
